FAERS Safety Report 8612718-5 (Version None)
Quarter: 2012Q3

REPORT INFORMATION
  Report Type: 
  Country: None (occurrence: None)
  Receive Date: 20120822
  Receipt Date: 20111027
  Transmission Date: 20120928
  Serious: No
  Sender: FDA-Public Use
  Company Number: US-ASTRAZENECA-2011SE49976

PATIENT
  Age: 89 Year
  Sex: Female

DRUGS (4)
  1. SYMBICORT [Suspect]
     Route: 055
  2. CRESTOR [Suspect]
     Route: 048
  3. LIPITOR [Concomitant]
  4. BLOOD PRESSURE MEDICATION [Concomitant]

REACTIONS (1)
  - URINARY TRACT INFECTION [None]
